FAERS Safety Report 5468079-6 (Version None)
Quarter: 2007Q3

REPORT INFORMATION
  Report Type: 
  Country: None (occurrence: None)
  Receive Date: 20070926
  Receipt Date: 20070917
  Transmission Date: 20080115
  Serious: Yes (Hospitalization)
  Sender: FDA-Public Use
  Company Number: GB-AVENTIS-200718584GDDC

PATIENT
  Age: 38 Year
  Sex: Female

DRUGS (7)
  1. METRONIDAZOLE [Suspect]
     Indication: CELLULITIS
     Route: 048
     Dates: start: 20070731
  2. FLUCLOXACILLIN [Suspect]
     Dates: end: 20070807
  3. CIPROFLOXACIN [Suspect]
     Indication: CELLULITIS
     Route: 048
     Dates: start: 20070731, end: 20070807
  4. EPILIM [Concomitant]
     Indication: EPILEPSY
     Route: 048
  5. LARGACTIL                          /00011901/ [Concomitant]
     Route: 048
  6. PARACETAMOL [Concomitant]
     Dosage: DOSE: UNK
     Route: 048
  7. TRAMADOL HCL [Concomitant]
     Indication: PAIN
     Route: 048
     Dates: start: 20070731

REACTIONS (4)
  - ERYTHEMA MULTIFORME [None]
  - PRURITUS [None]
  - RASH [None]
  - URTICARIA [None]
